APPROVED DRUG PRODUCT: METHSCOPOLAMINE BROMIDE
Active Ingredient: METHSCOPOLAMINE BROMIDE
Strength: 5MG
Dosage Form/Route: TABLET;ORAL
Application: A200602 | Product #002 | TE Code: AA
Applicant: UNICHEM LABORATORIES LTD
Approved: Sep 24, 2012 | RLD: No | RS: Yes | Type: RX